FAERS Safety Report 5913689-2 (Version None)
Quarter: 2008Q3

REPORT INFORMATION
  Report Type: 
  Country: None (occurrence: None)
  Receive Date: 20080909
  Receipt Date: 20071026
  Transmission Date: 20090109
  Serious: Yes (Death, Hospitalization, Other)
  Sender: FDA-Public Use
  Company Number: 163-20785-07081313

PATIENT
  Age: 53 Year
  Sex: Female

DRUGS (6)
  1. THALOMID [Suspect]
     Indication: MALIGNANT MELANOMA
     Dosage: 200 MG, QD, ORAL
     Route: 048
     Dates: start: 20070712, end: 20070807
  2. TEMODAR [Concomitant]
  3. TAMOXIFEN CITRATE [Concomitant]
  4. ZOFRAN [Concomitant]
  5. MORPHINE [Concomitant]
  6. MIRALAX [Concomitant]

REACTIONS (12)
  - ASCITES [None]
  - CELLULITIS [None]
  - CONSTIPATION [None]
  - DEHYDRATION [None]
  - HYPERKALAEMIA [None]
  - LEUKOPENIA [None]
  - MALIGNANT NEOPLASM PROGRESSION [None]
  - NAUSEA [None]
  - RENAL FAILURE [None]
  - THROMBOCYTOPENIA [None]
  - URINARY TRACT INFECTION [None]
  - VOMITING [None]
